FAERS Safety Report 9236750 (Version 1)
Quarter: 2013Q2

REPORT INFORMATION
  Report Type: Report from Study
  Country: AU (occurrence: AU)
  Receive Date: 20130417
  Receipt Date: 20130417
  Transmission Date: 20140414
  Serious: Yes (Hospitalization)
  Sender: FDA-Public Use
  Company Number: AU-ROCHE-1214398

PATIENT
  Sex: Male

DRUGS (12)
  1. ACTEMRA [Suspect]
     Indication: RHEUMATOID ARTHRITIS
     Route: 042
     Dates: start: 20130117
  2. FOLIC ACID [Concomitant]
     Indication: RHEUMATOID ARTHRITIS
     Route: 048
  3. METHOTREXATE [Concomitant]
     Indication: RHEUMATOID ARTHRITIS
     Route: 048
  4. SOLONE [Concomitant]
     Route: 048
  5. ASTRIX [Concomitant]
     Route: 048
  6. METROL (AUSTRALIA) [Concomitant]
     Route: 048
  7. EZETIMIBE [Concomitant]
     Route: 048
  8. NEXIUM [Concomitant]
     Indication: DYSPEPSIA
     Route: 048
  9. TRAMADOL [Concomitant]
     Indication: BACK PAIN
     Route: 048
  10. SPIRIVA [Concomitant]
     Indication: ASTHMA
     Route: 055
  11. VENTOLIN [Concomitant]
     Indication: ASTHMA
     Route: 055
  12. BIO-MAGNESIUM [Concomitant]
     Route: 048

REACTIONS (3)
  - Pain in extremity [Recovered/Resolved]
  - Contusion [Recovered/Resolved]
  - Arthralgia [Recovered/Resolved]
